FAERS Safety Report 5963509-5 (Version None)
Quarter: 2008Q4

REPORT INFORMATION
  Report Type: 
  Country: None (occurrence: None)
  Receive Date: 20081124
  Receipt Date: 20080929
  Transmission Date: 20090506
  Serious: No
  Sender: FDA-Public Use
  Company Number: US-BAYER-200813936BCC

PATIENT
  Age: 74 Year
  Sex: Male
  Weight: 71 kg

DRUGS (1)
  1. ALEVE [Suspect]
     Indication: BACK PAIN
     Dosage: TOTAL DAILY DOSE: 880 MG  UNIT DOSE: 220 MG
     Route: 048
     Dates: start: 20080601

REACTIONS (5)
  - ASTHENIA [None]
  - BALANCE DISORDER [None]
  - GENERALISED ERYTHEMA [None]
  - PRURITUS GENERALISED [None]
  - URTICARIA [None]
